FAERS Safety Report 8135610-1 (Version None)
Quarter: 2012Q1

REPORT INFORMATION
  Report Type: 
  Country: None (occurrence: None)
  Receive Date: 20120214
  Receipt Date: 20120208
  Transmission Date: 20120608
  Serious: Yes (Other)
  Sender: FDA-Public Use
  Company Number: PHHY2012CA011867

PATIENT
  Sex: Female

DRUGS (1)
  1. ZOMETA [Suspect]
     Indication: OSTEITIS DEFORMANS

REACTIONS (5)
  - RENAL PAIN [None]
  - NAUSEA [None]
  - ABASIA [None]
  - PAIN [None]
  - HEADACHE [None]
